FAERS Safety Report 6775085 (Version 13)
Quarter: 2014Q1

REPORT INFORMATION
  Report Type: Spontaneous
  Country: US (occurrence: US)
  Receive Date: 20080930
  Receipt Date: 20140311
  Transmission Date: 20141002
  Serious: Yes (Hospitalization, Other)
  Sender: FDA-Public Use
  Company Number: US-ROCHE-552292

PATIENT
  Age: 27 Year
  Sex: Male
  Weight: 95.3 kg

DRUGS (4)
  1. ACCUTANE [Suspect]
     Indication: ACNE
     Route: 065
     Dates: start: 19990122, end: 19991222
  2. WELLBUTRIN [Suspect]
     Indication: ANTIDEPRESSANT THERAPY
     Route: 065
  3. ZYPREXA [Suspect]
     Indication: ANTIDEPRESSANT THERAPY
     Route: 065
  4. ERYTHROMYCIN [Concomitant]
     Indication: ACNE
     Route: 065

REACTIONS (24)
  - Overdose [Unknown]
  - Loss of consciousness [Recovered/Resolved]
  - Crohn^s disease [Not Recovered/Not Resolved]
  - Inflammatory bowel disease [Unknown]
  - Depression [Unknown]
  - Suicide attempt [Unknown]
  - Suicidal ideation [Unknown]
  - Bipolar disorder [Unknown]
  - Mania [Unknown]
  - Large intestine polyp [Unknown]
  - Anticholinergic syndrome [Unknown]
  - Uveitis [Recovered/Resolved]
  - Gastrooesophageal reflux disease [Unknown]
  - Decreased appetite [Unknown]
  - Arthralgia [Unknown]
  - Myalgia [Unknown]
  - Headache [Unknown]
  - Pyrexia [Unknown]
  - Irritable bowel syndrome [Unknown]
  - Sinusitis [Unknown]
  - Bronchitis [Unknown]
  - Post concussion syndrome [Unknown]
  - Weight decreased [Unknown]
  - Iritis [Recovered/Resolved]
